FAERS Safety Report 7718750-8 (Version None)
Quarter: 2011Q3

REPORT INFORMATION
  Report Type: 
  Country: None (occurrence: None)
  Receive Date: 20110830
  Receipt Date: 20110829
  Transmission Date: 20111222
  Serious: Yes (Death)
  Sender: FDA-Public Use
  Company Number: KR-BAYER-2011-078152

PATIENT
  Age: 44 Year

DRUGS (16)
  1. ALDACTONE [Concomitant]
     Dosage: DAILY DOSE 50 MG
     Dates: start: 20110805, end: 20110827
  2. DULCOLAX [DOCUSATE SODIUM] [Concomitant]
     Dosage: DAILY DOSE 2 DF
     Dates: start: 20110806, end: 20110826
  3. MACPERA [Concomitant]
     Dosage: DAILY DOSE 5 MG
     Dates: start: 20110822, end: 20110822
  4. URSODIOL [Concomitant]
     Dosage: DAILY DOSE 400 MG
     Dates: start: 20110827, end: 20110827
  5. FLAGYL [Concomitant]
     Dosage: 0.5 G/ 100 ML
     Dates: start: 20110822, end: 20110828
  6. UNCODEABLE ^UNKNOWN MANUFACTURER^ [Concomitant]
     Dosage: 1 MG/V
     Dates: start: 20110824, end: 20110828
  7. DUPHALAC [Concomitant]
     Dosage: SYR 0.67 G/ML
     Dates: start: 20110826, end: 20110828
  8. GODEX [Concomitant]
     Dosage: DAILY DOSE 4 DF
     Dates: start: 20110827, end: 20110827
  9. NEXAVAR [Suspect]
     Indication: HEPATIC NEOPLASM MALIGNANT
     Dosage: DAILY DOSE 800 MG
     Route: 048
     Dates: start: 20110809, end: 20110824
  10. ACETAMINOPHEN [Concomitant]
     Dosage: DAILY DOSE 650 MG
     Dates: start: 20110809, end: 20110823
  11. ENTECAVIR [Concomitant]
     Dosage: DAILY DOSE .5 MG
  12. TRIAXON [Concomitant]
     Dosage: DAILY DOSE 2 G
     Dates: start: 20110822, end: 20110827
  13. BIOFLOR [Concomitant]
     Dosage: 3 CAPSULE
     Dates: start: 20110823, end: 20110827
  14. PANTOPRAZOLE SODIUM [Concomitant]
     Dosage: DAILY DOSE 5 MG
     Dates: start: 20110823, end: 20110826
  15. LASIX [Concomitant]
     Dosage: DAILY DOSE 20 MG
     Dates: start: 20110805, end: 20110827
  16. DUROGESIC-TTS [Concomitant]
     Dosage: 75MCG/H 12.6 MG/31.5 CNF (1 PATCH)
     Route: 062
     Dates: start: 20110823, end: 20110826

REACTIONS (1)
  - HEPATIC FAILURE [None]
